FAERS Safety Report 7556954 (Version 3)
Quarter: 2019Q1

REPORT INFORMATION
  Report Type: Not Available
  Country: US (occurrence: US)
  Receive Date: 20100827
  Receipt Date: 20190110
  Transmission Date: 20190418
  Serious: Yes (Death)
  Sender: FDA-Public Use
  Company Number: US-CELGENEUS-163-21880-10082675

PATIENT
  Age: 72 Year
  Sex: Female

DRUGS (1)
  1. REVLIMID [Suspect]
     Active Substance: LENALIDOMIDE
     Indication: MYELODYSPLASTIC SYNDROME
     Dosage: 10 MILLIGRAM
     Route: 048
     Dates: start: 20090803, end: 20090817

REACTIONS (3)
  - Cardio-respiratory arrest [Fatal]
  - Acute myeloid leukaemia [Fatal]
  - Myelodysplastic syndrome transformation [Fatal]

NARRATIVE: CASE EVENT DATE: 20091015
